FAERS Safety Report 8144358-9 (Version None)
Quarter: 2012Q1

REPORT INFORMATION
  Report Type: 
  Country: None (occurrence: None)
  Receive Date: 20120217
  Receipt Date: 20120209
  Transmission Date: 20120608
  Serious: Yes (Other)
  Sender: FDA-Public Use
  Company Number: US-JNJFOC-20120205448

PATIENT
  Sex: Female
  Weight: 106.14 kg

DRUGS (4)
  1. DURAGESIC-100 [Suspect]
     Indication: BACK PAIN
     Route: 062
     Dates: start: 20030101
  2. FENTANYL [Suspect]
     Indication: BACK PAIN
     Route: 062
  3. DURAGESIC-100 [Suspect]
     Route: 062
  4. VITAMIN B-12 [Concomitant]
     Indication: ANAEMIA
     Route: 065

REACTIONS (4)
  - ANAEMIA [None]
  - PRODUCT QUALITY ISSUE [None]
  - DERMATITIS CONTACT [None]
  - ASTHENIA [None]
